FAERS Safety Report 9157681 (Version 3)
Quarter: 2013Q2

REPORT INFORMATION
  Report Type: Spontaneous
  Country: US (occurrence: US)
  Receive Date: 20130312
  Receipt Date: 20130507
  Transmission Date: 20140414
  Serious: Yes (Hospitalization, Other)
  Sender: FDA-Public Use
  Company Number: US-JNJFOC-20130113090

PATIENT
  Age: 81 Year
  Sex: Male
  Weight: 89 kg

DRUGS (13)
  1. XARELTO [Suspect]
     Indication: CEREBROVASCULAR ACCIDENT PROPHYLAXIS
     Route: 048
     Dates: start: 20121224, end: 20130111
  2. XARELTO [Suspect]
     Indication: ATRIAL FIBRILLATION
     Route: 048
     Dates: start: 20121224, end: 20130111
  3. IBUPROFEN [Suspect]
     Route: 065
  4. IBUPROFEN [Suspect]
     Indication: ARTHRALGIA
     Route: 065
  5. MULTAQ [Suspect]
     Indication: ATRIAL FIBRILLATION
     Route: 048
     Dates: start: 20121224
  6. ALEVE [Suspect]
     Indication: ARTHRALGIA
     Route: 065
  7. ASPIRIN [Suspect]
     Indication: ARTHRALGIA
     Route: 065
  8. ASPIRIN [Suspect]
     Indication: ARTHRALGIA
     Route: 065
  9. FERROUS SULFATE [Concomitant]
     Route: 048
  10. METOPROLOL TARTRATE [Concomitant]
     Route: 048
  11. PROTONIX [Concomitant]
     Route: 048
  12. ALPRAZOLAM [Concomitant]
     Route: 048
  13. LOVASTATIN [Concomitant]
     Route: 048

REACTIONS (3)
  - Duodenal ulcer [Recovering/Resolving]
  - Rectal haemorrhage [Unknown]
  - Dizziness [Unknown]
